FAERS Safety Report 24442752 (Version 1)
Quarter: 2024Q4

REPORT INFORMATION
  Report Type: Spontaneous
  Country: US (occurrence: US)
  Receive Date: 20241016
  Receipt Date: 20241016
  Transmission Date: 20250115
  Serious: No
  Sender: SANDOZ
  Company Number: US-002147023-NVSC2023US242570

PATIENT
  Sex: Female

DRUGS (2)
  1. COMBIPATCH [Suspect]
     Active Substance: ESTRADIOL\NORETHINDRONE ACETATE
     Dosage: UNK (0.05/0.25 MG) (ABOUT 5 WEEKS PRIOR TO THIS REPORT, HER HEALTH CARE PROFESSIONAL (HCP) INCREASED
     Route: 062
     Dates: start: 2023
  2. COMBIPATCH [Suspect]
     Active Substance: ESTRADIOL\NORETHINDRONE ACETATE
     Indication: Menopause
     Dosage: UNK (0.05/0.14 MG)
     Route: 062

REACTIONS (3)
  - Brain fog [Recovered/Resolved]
  - Fatigue [Recovered/Resolved]
  - Therapeutic product ineffective [Recovered/Resolved]
